FAERS Safety Report 8391604-2 (Version None)
Quarter: 2012Q2

REPORT INFORMATION
  Report Type: 
  Country: None (occurrence: None)
  Receive Date: 20120529
  Receipt Date: 20120516
  Transmission Date: 20120825
  Serious: Yes (Hospitalization, Other)
  Sender: FDA-Public Use
  Company Number: DE-ASTRAZENECA-2012SE31165

PATIENT
  Age: 2 Month
  Sex: Male
  Weight: 4.8 kg

DRUGS (2)
  1. VIGANTOLETTE [Concomitant]
     Indication: BONE PAIN
     Dosage: 500 IE DAILY
     Dates: start: 20120305
  2. SYNAGIS [Suspect]
     Indication: ANTIVIRAL PROPHYLAXIS
     Dosage: PATIENT RECEIVED THREE INJECTIONS OF SYNAGIS, 50 MG
     Route: 030
     Dates: start: 20120220

REACTIONS (11)
  - BREATH SOUNDS ABNORMAL [None]
  - ACUTE RESPIRATORY FAILURE [None]
  - BRONCHITIS [None]
  - FLUID INTAKE REDUCED [None]
  - APATHY [None]
  - WEIGHT DECREASED [None]
  - HYPOPHAGIA [None]
  - COUGH [None]
  - GENERAL PHYSICAL HEALTH DETERIORATION [None]
  - VOMITING [None]
  - RHINITIS [None]
